FAERS Safety Report 10391881 (Version 33)
Quarter: 2019Q3

REPORT INFORMATION
  Report Type: Report from Study
  Country: CA (occurrence: CA)
  Receive Date: 20140819
  Receipt Date: 20190926
  Transmission Date: 20191004
  Serious: Yes (Hospitalization, Other)
  Sender: FDA-Public Use
  Company Number: PHHY2013CA121649

PATIENT
  Age: 86 Year
  Sex: Male

DRUGS (7)
  1. SANDOSTATIN LAR DEPOT [Suspect]
     Active Substance: OCTREOTIDE ACETATE
     Dosage: 60 MG, EVERY 3 WEEKS
     Route: 030
     Dates: start: 20150331
  2. LUTETIUM (LU 177) [Concomitant]
     Active Substance: LUTETIUM LU-177
     Indication: PRODUCT USED FOR UNKNOWN INDICATION
     Dosage: UNK
     Route: 065
     Dates: start: 20150716
  3. SANDOSTATIN [Suspect]
     Active Substance: OCTREOTIDE ACETATE
     Indication: CARCINOID TUMOUR
     Dosage: 500 UG, UNK
     Route: 058
     Dates: start: 20060522
  4. SANDOSTATIN LAR DEPOT [Suspect]
     Active Substance: OCTREOTIDE ACETATE
     Indication: CARCINOID TUMOUR
     Dosage: 60 MG, EVERY THREE WEEK
     Route: 030
     Dates: start: 20050107
  5. SANDOSTATIN LAR DEPOT [Suspect]
     Active Substance: OCTREOTIDE ACETATE
     Dosage: 30 MG, EVERY 3 WEEKS
     Route: 030
     Dates: start: 20150205
  6. BISOPROLOL [Concomitant]
     Active Substance: BISOPROLOL
     Indication: PRODUCT USED FOR UNKNOWN INDICATION
     Route: 065
  7. SANDOSTATIN LAR DEPOT [Suspect]
     Active Substance: OCTREOTIDE ACETATE
     Dosage: 60 MG, EVERY 3 WEEKS
     Route: 030
     Dates: start: 20150224

REACTIONS (32)
  - Body temperature decreased [Unknown]
  - Body temperature increased [Unknown]
  - Coronary artery occlusion [Unknown]
  - Abdominal pain [Recovering/Resolving]
  - Cerebrovascular accident [Unknown]
  - Muscle spasms [Unknown]
  - Fatigue [Unknown]
  - Asthenia [Unknown]
  - Needle issue [Unknown]
  - Dysarthria [Unknown]
  - Malignant neoplasm progression [Unknown]
  - Gastrointestinal sounds abnormal [Unknown]
  - Blood pressure systolic decreased [Unknown]
  - Back pain [Unknown]
  - Dreamy state [Unknown]
  - Herpes zoster [Unknown]
  - Aphasia [Unknown]
  - Heart rate decreased [Not Recovered/Not Resolved]
  - Flushing [Recovering/Resolving]
  - Rash [Not Recovered/Not Resolved]
  - Angina pectoris [Unknown]
  - Blood pressure systolic increased [Recovered/Resolved]
  - Blood pressure diastolic decreased [Not Recovered/Not Resolved]
  - Insomnia [Unknown]
  - Restlessness [Unknown]
  - Abdominal pain lower [Not Recovered/Not Resolved]
  - Constipation [Unknown]
  - Bowel movement irregularity [Recovering/Resolving]
  - Malaise [Unknown]
  - Headache [Not Recovered/Not Resolved]
  - Abdominal tenderness [Unknown]
  - Inappropriate schedule of product administration [Unknown]

NARRATIVE: CASE EVENT DATE: 2014
